FAERS Safety Report 12267719 (Version 2)
Quarter: 2016Q2

REPORT INFORMATION
  Report Type: Spontaneous
  Country: US (occurrence: US)
  Receive Date: 20160414
  Receipt Date: 20160428
  Transmission Date: 20160815
  Serious: No
  Sender: FDA-Public Use
  Company Number: US-GLAXOSMITHKLINE-US2016050324

PATIENT
  Sex: Female

DRUGS (1)
  1. PREVACID 24 HR [Suspect]
     Active Substance: LANSOPRAZOLE
     Indication: DYSPEPSIA
     Dosage: 28CT NG, UNK

REACTIONS (5)
  - Drug prescribing error [Unknown]
  - Chromaturia [Recovering/Resolving]
  - Extra dose administered [Unknown]
  - Nausea [Recovering/Resolving]
  - Vomiting [Recovering/Resolving]
